FAERS Safety Report 16698603 (Version 1)
Quarter: 2019Q3

REPORT INFORMATION
  Report Type: Spontaneous
  Country: US (occurrence: US)
  Receive Date: 20190813
  Receipt Date: 20190813
  Transmission Date: 20191004
  Serious: Yes (Other)
  Sender: FDA-Public Use
  Company Number: US-TEVA-2019-US-1090547

PATIENT
  Age: 22 Year
  Sex: Male

DRUGS (5)
  1. ETOPOSIDE. [Suspect]
     Active Substance: ETOPOSIDE
     Indication: BURKITT^S LYMPHOMA
     Dosage: 4 CYCLES OF A MODIFIED EPOCH REGIMEN; 24-HOUR DOSES
     Route: 065
  2. PREDNISONE. [Suspect]
     Active Substance: PREDNISONE
     Indication: BURKITT^S LYMPHOMA
     Dosage: 4 CYCLES OF A MODIFIED EPOCH REGIMEN; 24-HOUR DOSES
     Route: 065
  3. CYCLOPHOSPHAMIDE. [Suspect]
     Active Substance: CYCLOPHOSPHAMIDE
     Indication: BURKITT^S LYMPHOMA
     Dosage: 4 CYCLES OF A MODIFIED EPOCH REGIMEN; 24-HOUR DOSES
     Route: 065
  4. DOXORUBICIN [Suspect]
     Active Substance: DOXORUBICIN
     Indication: BURKITT^S LYMPHOMA
     Dosage: 4 CYCLES OF A MODIFIED EPOCH REGIMEN; 24-HOUR DOSES
     Route: 065
  5. VINCRISTINE [Suspect]
     Active Substance: VINCRISTINE
     Indication: BURKITT^S LYMPHOMA
     Dosage: 4 CYCLES OF A MODIFIED EPOCH REGIMEN; 24-HOUR DOSES
     Route: 065

REACTIONS (2)
  - Neutropenia [Unknown]
  - Product dose omission [Unknown]
